FAERS Safety Report 22232280 (Version 1)
Quarter: 2023Q2

REPORT INFORMATION
  Report Type: Spontaneous
  Country: US (occurrence: None)
  Receive Date: 20230420
  Receipt Date: 20230420
  Transmission Date: 20230722
  Serious: No
  Sender: FDA-Public Use
  Company Number: US-ROCHE-3087485

PATIENT
  Sex: Female

DRUGS (2)
  1. ESBRIET [Suspect]
     Active Substance: PIRFENIDONE
     Indication: Product used for unknown indication
     Route: 048
     Dates: start: 20220411
  2. MUCINEX [Concomitant]
     Active Substance: GUAIFENESIN

REACTIONS (6)
  - Nasopharyngitis [Unknown]
  - Productive cough [Unknown]
  - Back disorder [Unknown]
  - Back pain [Unknown]
  - Eye disorder [Unknown]
  - Gait disturbance [Unknown]
